FAERS Safety Report 7053999-1 (Version None)
Quarter: 2010Q4

REPORT INFORMATION
  Report Type: 
  Country: None (occurrence: None)
  Receive Date: 20101020
  Receipt Date: 20101007
  Transmission Date: 20110411
  Serious: No
  Sender: FDA-Public Use
  Company Number: US-PFIZER INC-2010128487

PATIENT
  Sex: Female
  Weight: 59.864 kg

DRUGS (6)
  1. LYRICA [Suspect]
     Indication: FIBROMYALGIA
     Dosage: 50MG ORAL CAPSULE ONE IN THE MORNING AND 150MG AT NIGHT FOR FIBROMYALGIA, 2X/DAY
     Route: 048
     Dates: start: 20070901
  2. CYMBALTA [Concomitant]
     Indication: DEPRESSION
     Dosage: 60 MG, 1X/DAY
  3. LOESTRIN 1.5/30 [Concomitant]
     Indication: MENOPAUSE
     Dosage: UNK
  4. SULFACETAMIDE [Concomitant]
     Indication: ROSACEA
     Dosage: UNK
  5. METROGEL [Concomitant]
     Indication: ROSACEA
     Dosage: UNK, DAILY
  6. AZELAIC ACID [Concomitant]
     Indication: ROSACEA
     Dosage: UNK

REACTIONS (2)
  - DRY EYE [None]
  - FLATULENCE [None]
